FAERS Safety Report 12859849 (Version 1)
Quarter: 2016Q4

REPORT INFORMATION
  Report Type: Spontaneous
  Country: US (occurrence: US)
  Receive Date: 20161018
  Receipt Date: 20161018
  Transmission Date: 20170207
  Serious: Yes (Hospitalization)
  Sender: FDA-Public Use
  Company Number: None

PATIENT
  Age: 71 Year
  Sex: Male
  Weight: 86.6 kg

DRUGS (2)
  1. BENDAMUSTINE HYDROCHLORIDE. [Suspect]
     Active Substance: BENDAMUSTINE HYDROCHLORIDE
     Dates: end: 20160907
  2. RITUXIMAB (MOAB C2B8 ANTI CD20, CHIMERIC) [Suspect]
     Active Substance: RITUXIMAB
     Dates: end: 20160906

REACTIONS (19)
  - Chills [None]
  - Pneumonia [None]
  - Blood lactic acid increased [None]
  - Lymphocyte count decreased [None]
  - Generalised oedema [None]
  - Livedo reticularis [None]
  - Febrile neutropenia [None]
  - Neutrophil count decreased [None]
  - Cyanosis [None]
  - Malnutrition [None]
  - Hypotension [None]
  - Haemoglobin decreased [None]
  - Tremor [None]
  - Rash [None]
  - Metabolic acidosis [None]
  - Bacterial test positive [None]
  - Pyuria [None]
  - Tachycardia [None]
  - Oral herpes [None]

NARRATIVE: CASE EVENT DATE: 20160917
